FAERS Safety Report 19271073 (Version 1)
Quarter: 2021Q2

REPORT INFORMATION
  Report Type: Report from Study
  Country: FR (occurrence: FR)
  Receive Date: 20210518
  Receipt Date: 20210518
  Transmission Date: 20210717
  Serious: Yes (Disabling)
  Sender: FDA-Public Use
  Company Number: FR-PFIZER INC-2021506598

PATIENT
  Age: 72 Year
  Sex: Female
  Weight: 63 kg

DRUGS (20)
  1. INOTUZUMAB OZOGAMICIN [Suspect]
     Active Substance: INOTUZUMAB OZOGAMICIN
     Dosage: 0.83 MG ON DAY 8
     Dates: start: 20201201, end: 20201201
  2. VINCRISTINE SULFATE. [Suspect]
     Active Substance: VINCRISTINE SULFATE
     Dosage: 2 MG ON DAY 22
     Dates: start: 20201215, end: 20201215
  3. BACTRIM [Concomitant]
     Active Substance: SULFAMETHOXAZOLE\TRIMETHOPRIM
     Dosage: 400 MG/80 MG DAILY
     Route: 048
     Dates: start: 20201125
  4. INOTUZUMAB OZOGAMICIN [Suspect]
     Active Substance: INOTUZUMAB OZOGAMICIN
     Dosage: 0.83 MG ON DAY 15
     Dates: start: 20201208, end: 20201208
  5. CYTARABINE. [Suspect]
     Active Substance: CYTARABINE
     Dosage: 40 MG ON DAY 2
     Dates: start: 20201223, end: 20201223
  6. VINCRISTINE SULFATE. [Suspect]
     Active Substance: VINCRISTINE SULFATE
     Dosage: 2 MG ON DAY 1
     Dates: start: 20201124, end: 20201124
  7. VINCRISTINE SULFATE. [Suspect]
     Active Substance: VINCRISTINE SULFATE
     Dosage: 2 MG ON DAY 15
     Dates: start: 20201208, end: 20201208
  8. ZARZIO [Concomitant]
     Active Substance: FILGRASTIM
     Dosage: 1 AMPOULE DAILY
     Route: 059
     Dates: start: 20201230, end: 20210101
  9. INOTUZUMAB OZOGAMICIN [Suspect]
     Active Substance: INOTUZUMAB OZOGAMICIN
     Dosage: 0.83 MG ON DAY 8
     Dates: start: 20201229, end: 20201229
  10. ZELITREX [Concomitant]
     Active Substance: VALACYCLOVIR HYDROCHLORIDE
     Dosage: 500 MG, DAILY
     Route: 048
     Dates: start: 20201125
  11. INOTUZUMAB OZOGAMICIN [Suspect]
     Active Substance: INOTUZUMAB OZOGAMICIN
     Dosage: 1.31 MG ON DAY 1
     Dates: start: 20201124, end: 20201124
  12. METHOTREXATE. [Suspect]
     Active Substance: METHOTREXATE
     Dosage: 15 MG ON DAY 2
     Route: 037
     Dates: start: 20201125, end: 20201125
  13. CYCLOPHOSPHAMIDE. [Suspect]
     Active Substance: CYCLOPHOSPHAMIDE
     Dosage: 495 MG ON DAY 3
     Dates: start: 20201224, end: 20201224
  14. CYTARABINE. [Suspect]
     Active Substance: CYTARABINE
     Dosage: 40 MG ON DAY 2
     Dates: start: 20201125, end: 20201125
  15. CYCLOPHOSPHAMIDE. [Suspect]
     Active Substance: CYCLOPHOSPHAMIDE
     Dosage: 495 MG ON DAY 1
     Dates: start: 20201222, end: 20201222
  16. VINCRISTINE SULFATE. [Suspect]
     Active Substance: VINCRISTINE SULFATE
     Dosage: 2 MG ON DAY 8
     Dates: start: 20201201, end: 20201201
  17. CYCLOPHOSPHAMIDE. [Suspect]
     Active Substance: CYCLOPHOSPHAMIDE
     Dosage: 495 MG ON DAY 2
     Dates: start: 20201223, end: 20201223
  18. FOLINORAL [Concomitant]
     Active Substance: LEUCOVORIN CALCIUM
     Dosage: 5 MG, DAILY
     Route: 048
     Dates: start: 20201125
  19. INOTUZUMAB OZOGAMICIN [Suspect]
     Active Substance: INOTUZUMAB OZOGAMICIN
     Dosage: 0.83 MG ON DAY 1
     Dates: start: 20201222, end: 20201222
  20. METHOTREXATE. [Suspect]
     Active Substance: METHOTREXATE
     Dosage: 15 MG ON DAY 2
     Route: 037
     Dates: start: 20201223, end: 20201223

REACTIONS (1)
  - Neuropathy peripheral [Not Recovered/Not Resolved]

NARRATIVE: CASE EVENT DATE: 20201229
